FAERS Safety Report 15604602 (Version 16)
Quarter: 2019Q4

REPORT INFORMATION
  Report Type: Spontaneous
  Country: CA (occurrence: CA)
  Receive Date: 20181110
  Receipt Date: 20191221
  Transmission Date: 20200122
  Serious: Yes (Hospitalization, Other)
  Sender: FDA-Public Use
  Company Number: CA-CELLTRION INC.-2018CA023718

PATIENT

DRUGS (12)
  1. INFLECTRA [Suspect]
     Active Substance: INFLIXIMAB-DYYB
     Dosage: 400 MG WEEKS 2, 6 AND EVERY 8 WEEKS THEREAFTER
     Route: 042
     Dates: start: 20190116
  2. INFLECTRA [Suspect]
     Active Substance: INFLIXIMAB-DYYB
     Indication: CROHN^S DISEASE
     Dosage: 400 MG (4 VIALS (4 X 100 MG VIALS)), WEEKS 2, 6 AND EVERY 8 WEEKS THEREAFTER
     Route: 042
     Dates: start: 20181004
  3. INFLECTRA [Suspect]
     Active Substance: INFLIXIMAB-DYYB
     Dosage: 400 MG WEEKS 2, 6 AND EVERY 8 WEEKS THEREAFTER
     Route: 042
     Dates: start: 20190116
  4. INFLECTRA [Suspect]
     Active Substance: INFLIXIMAB-DYYB
     Dosage: 400 MG WEEKS 2, 6 AND EVERY 8 WEEKS THEREAFTER
     Route: 042
     Dates: start: 20190509
  5. INFLECTRA [Suspect]
     Active Substance: INFLIXIMAB-DYYB
     Dosage: 400 MG WEEKS 2, 6 AND EVERY 8 WEEKS THEREAFTER
     Route: 042
     Dates: start: 20190918
  6. INFLECTRA [Suspect]
     Active Substance: INFLIXIMAB-DYYB
     Dosage: 400 MG WEEKS 2, 6 AND EVERY 8 WEEKS THEREAFTER
     Route: 042
     Dates: start: 20190509
  7. INFLECTRA [Suspect]
     Active Substance: INFLIXIMAB-DYYB
     Dosage: 400 MG WEEKS 2, 6 AND EVERY 8 WEEKS THEREAFTER
     Route: 042
     Dates: start: 20190705
  8. INFLECTRA [Suspect]
     Active Substance: INFLIXIMAB-DYYB
     Dosage: 400 MG WEEKS 2, 6 AND EVERY 8 WEEKS THEREAFTER
     Route: 042
     Dates: start: 20191118
  9. INFLECTRA [Suspect]
     Active Substance: INFLIXIMAB-DYYB
     Dosage: 400 MG WEEKS 2, 6 AND EVERY 8 WEEKS THEREAFTER
     Route: 042
     Dates: start: 20191118
  10. INFLECTRA [Suspect]
     Active Substance: INFLIXIMAB-DYYB
     Dosage: 400 MG WEEKS 2, 6 AND EVERY 8 WEEKS THEREAFTER
     Route: 042
     Dates: start: 20181117
  11. INFLECTRA [Suspect]
     Active Substance: INFLIXIMAB-DYYB
     Dosage: 400 MG WEEKS 2, 6 AND EVERY 8 WEEKS THEREAFTER
     Route: 042
     Dates: start: 20190314
  12. INFLECTRA [Suspect]
     Active Substance: INFLIXIMAB-DYYB
     Dosage: 400 MG WEEKS 2, 6 AND EVERY 8 WEEKS THEREAFTER
     Route: 042
     Dates: start: 20190705

REACTIONS (10)
  - Dementia [Unknown]
  - Dysstasia [Unknown]
  - Faecal calprotectin increased [Unknown]
  - Fall [Unknown]
  - Intentional product use issue [Unknown]
  - Drug level above therapeutic [Unknown]
  - Off label use [Unknown]
  - Gastrointestinal inflammation [Unknown]
  - Condition aggravated [Unknown]
  - Hip fracture [Unknown]

NARRATIVE: CASE EVENT DATE: 20190430
